FAERS Safety Report 9137028 (Version 1)
Quarter: 2013Q1

REPORT INFORMATION
  Report Type: Spontaneous
  Country: RO (occurrence: RO)
  Receive Date: 20130304
  Receipt Date: 20130304
  Transmission Date: 20140127
  Serious: Yes (Other)
  Sender: FDA-Public Use
  Company Number: RO-ASTRAZENECA-2013SE12720

PATIENT
  Age: 61 Year
  Sex: Male

DRUGS (5)
  1. VIMOVO [Suspect]
     Indication: OSTEOARTHRITIS
     Dosage: 2 TABLETS, DAILY
     Route: 048
     Dates: start: 201302, end: 201302
  2. OMNIC [Concomitant]
  3. AVODART [Concomitant]
  4. METOPROLOL [Concomitant]
  5. TERTENSIF [Concomitant]

REACTIONS (1)
  - Rectal haemorrhage [Recovered/Resolved]
